FAERS Safety Report 7826278-X (Version None)
Quarter: 2011Q4

REPORT INFORMATION
  Report Type: 
  Country: None (occurrence: None)
  Receive Date: 20111020
  Receipt Date: 20111014
  Transmission Date: 20120403
  Serious: No
  Sender: FDA-Public Use
  Company Number: US-BIOGENIDEC-2011BI035708

PATIENT
  Age: 46 Year
  Sex: Female

DRUGS (5)
  1. TYSABRI [Suspect]
     Route: 042
  2. TYSABRI [Suspect]
     Indication: MULTIPLE SCLEROSIS
     Route: 042
     Dates: start: 20110721
  3. TYSABRI [Suspect]
     Route: 042
  4. AVONEX [Concomitant]
     Route: 030
  5. AVONEX [Concomitant]
     Route: 030

REACTIONS (1)
  - POOR VENOUS ACCESS [None]
